FAERS Safety Report 20051596 (Version 1)
Quarter: 2021Q4

REPORT INFORMATION
  Report Type: Spontaneous
  Country: US (occurrence: US)
  Receive Date: 20211110
  Receipt Date: 20211110
  Transmission Date: 20220303
  Serious: No
  Sender: FDA-Public Use
  Company Number: US-SA-SAC20211107000080

PATIENT
  Sex: Male

DRUGS (6)
  1. DUPIXENT [Suspect]
     Active Substance: DUPILUMAB
     Indication: Dermatitis atopic
     Dosage: 300 MG/2ML, QOW
     Route: 058
     Dates: start: 20210113
  2. AVAPRO [Concomitant]
     Active Substance: IRBESARTAN
     Dosage: UNK MG
  3. SYNOVACIN [Concomitant]
  4. FARXIGA [Concomitant]
     Active Substance: DAPAGLIFLOZIN PROPANEDIOL
  5. IRBESARTAN [Concomitant]
     Active Substance: IRBESARTAN
  6. METFORMIN HYDROCHLORIDE [Concomitant]
     Active Substance: METFORMIN HYDROCHLORIDE

REACTIONS (1)
  - Dermatitis atopic [Unknown]
